FAERS Safety Report 17970337 (Version 2)
Quarter: 2020Q3

REPORT INFORMATION
  Report Type: Spontaneous
  Country: US (occurrence: US)
  Receive Date: 20200702
  Receipt Date: 20200708
  Transmission Date: 20201103
  Serious: Yes (Hospitalization, Other)
  Sender: FDA-Public Use
  Company Number: US-ABBVIE-20K-163-3460504-00

PATIENT
  Age: 49 Year
  Sex: Female
  Weight: 42.64 kg

DRUGS (5)
  1. LIOTHYRONINE [Suspect]
     Active Substance: LIOTHYRONINE
     Indication: HYPOTHYROIDISM
     Dosage: HALF A TABLET BY MOUTH ONCE A DAY
     Route: 048
     Dates: start: 2002
  2. VALACYCLOVIR [Concomitant]
     Active Substance: VALACYCLOVIR HYDROCHLORIDE
     Indication: HERPES SIMPLEX ENCEPHALITIS
     Route: 065
  3. SYNTHROID [Suspect]
     Active Substance: LEVOTHYROXINE SODIUM
     Indication: HYPOTHYROIDISM
     Dosage: 1 TABLET EVERYDAY, BUT 1.5 TABLETS EVERY SATURDAY AND SUNDAY
     Route: 048
  4. SYNTHROID [Suspect]
     Active Substance: LEVOTHYROXINE SODIUM
     Dosage: DOSE WENT FROM 88 MCG TO 75 MCG.
     Route: 048
  5. CYTOMEL [Suspect]
     Active Substance: LIOTHYRONINE SODIUM
     Indication: PRODUCT USED FOR UNKNOWN INDICATION
     Dosage: HALF A TABLET BY MOUTH ONCE A DAY BEFORE MEAL
     Route: 048
     Dates: start: 20200616

REACTIONS (14)
  - Pulmonary embolism [Unknown]
  - Incorrect dose administered [Unknown]
  - Gait inability [Unknown]
  - Scoliosis [Unknown]
  - Small cell lung cancer [Unknown]
  - Deep vein thrombosis [Unknown]
  - Product physical issue [Unknown]
  - Osteonecrosis [Unknown]
  - Weight decreased [Unknown]
  - Herpes simplex encephalitis [Unknown]
  - Growth retardation [Unknown]
  - Neutropenia [Unknown]
  - Hypophagia [Unknown]
  - Pain [Unknown]

NARRATIVE: CASE EVENT DATE: 2015
